FAERS Safety Report 17599562 (Version 1)
Quarter: 2020Q1

REPORT INFORMATION
  Report Type: Spontaneous
  Country: US (occurrence: US)
  Receive Date: 20200330
  Receipt Date: 20200330
  Transmission Date: 20200409
  Serious: Yes (Other)
  Sender: FDA-Public Use
  Company Number: US-SA-2020SA077688

PATIENT
  Age: 63 Year
  Sex: Female
  Weight: 91.61 kg

DRUGS (7)
  1. FASLODEX [Concomitant]
     Active Substance: FULVESTRANT
  2. CALCIUM CARBONATE. [Concomitant]
     Active Substance: CALCIUM CARBONATE
  3. ELIQUIS [Concomitant]
     Active Substance: APIXABAN
  4. LIDOCAINE HCL [Concomitant]
     Active Substance: LIDOCAINE HYDROCHLORIDE
  5. DUPIXENT [Suspect]
     Active Substance: DUPILUMAB
     Indication: DERMATITIS ATOPIC
     Dosage: 300 MG, QOW
     Route: 058
     Dates: start: 201801
  6. ASPIRIN EC [Concomitant]
     Active Substance: ASPIRIN
  7. IBRANCE [Concomitant]
     Active Substance: PALBOCICLIB

REACTIONS (2)
  - Brain neoplasm [Unknown]
  - Inflammation [Unknown]
